FAERS Safety Report 6539669-4 (Version None)
Quarter: 2010Q1

REPORT INFORMATION
  Report Type: 
  Country: None (occurrence: None)
  Receive Date: 20100112
  Receipt Date: 20091231
  Transmission Date: 20100710
  Serious: Yes (Hospitalization)
  Sender: FDA-Public Use
  Company Number: AUR-APU-2010-00001

PATIENT
  Age: 62 Year
  Sex: Male
  Weight: 77.1115 kg

DRUGS (15)
  1. MELOXICAM [Suspect]
     Indication: TENDONITIS
     Dosage: 15MG DAILY
     Dates: start: 20091202, end: 20091208
  2. RAMIPRIL [Concomitant]
  3. HYDROCHLOROTHIAZIDE [Concomitant]
  4. PEPCID [Concomitant]
  5. PLAVIX [Concomitant]
  6. SIMVASTATIN [Concomitant]
  7. MULTI-VITAMIN [Concomitant]
  8. GNC MEGA MEN 50+ [Concomitant]
  9. VITAMIN C [Concomitant]
  10. VITAMIN D3 [Concomitant]
  11. CITRICAL PLUS VITAMIN D [Concomitant]
  12. VITAMIN E [Concomitant]
  13. FISH OIL [Concomitant]
  14. LUBRIJOINT [Concomitant]
  15. POTASSIUM [Concomitant]

REACTIONS (6)
  - BLOOD PRESSURE INCREASED [None]
  - COLD SWEAT [None]
  - DIZZINESS [None]
  - DYSARTHRIA [None]
  - PARAESTHESIA [None]
  - SENSORY LOSS [None]
